FAERS Safety Report 14324689 (Version 1)
Quarter: 2017Q4

REPORT INFORMATION
  Report Type: Spontaneous
  Country: US (occurrence: US)
  Receive Date: 20171222
  Receipt Date: 20171222
  Transmission Date: 20180321
  Serious: Yes (Hospitalization)
  Sender: FDA-Public Use
  Company Number: None

PATIENT
  Age: 26 Year
  Sex: Female

DRUGS (1)
  1. OPSUMIT [Suspect]
     Active Substance: MACITENTAN
     Indication: PULMONARY ARTERIAL HYPERTENSION
     Route: 048
     Dates: start: 20170127

REACTIONS (7)
  - Pneumonia [None]
  - Rhinorrhoea [None]
  - Anxiety [None]
  - Pain [None]
  - Malaise [None]
  - Dyspnoea [None]
  - Sinus tachycardia [None]

NARRATIVE: CASE EVENT DATE: 20171201
